FAERS Safety Report 9694186 (Version 1)
Quarter: 2013Q4

REPORT INFORMATION
  Report Type: Spontaneous
  Country: CA (occurrence: CA)
  Receive Date: 20131118
  Receipt Date: 20131118
  Transmission Date: 20140711
  Serious: Yes (Other)
  Sender: FDA-Public Use
  Company Number: PHHY2013CA129420

PATIENT
  Age: 45 Year
  Sex: Female

DRUGS (1)
  1. METRONIDAZOLE [Suspect]
     Indication: GASTROINTESTINAL INFECTION
     Route: 048

REACTIONS (6)
  - Dermatitis [Unknown]
  - Dermatitis contact [Unknown]
  - Drug eruption [Unknown]
  - Skin oedema [Unknown]
  - Rash erythematous [Unknown]
  - Rash maculo-papular [Unknown]
